FAERS Safety Report 13014605 (Version 1)
Quarter: 2016Q4

REPORT INFORMATION
  Report Type: Spontaneous
  Country: JP (occurrence: JP)
  Receive Date: 20161209
  Receipt Date: 20161209
  Transmission Date: 20170207
  Serious: Yes (Death)
  Sender: FDA-Public Use
  Company Number: JP-MALLINCKRODT-T201606325

PATIENT
  Age: 43 Year
  Sex: Male
  Weight: 60 kg

DRUGS (40)
  1. METHADONE [Suspect]
     Active Substance: METHADONE HYDROCHLORIDE
     Dosage: 15 MG (30 MG DAILY DOSE)
     Route: 048
     Dates: start: 20140919, end: 20141127
  2. METHADONE [Suspect]
     Active Substance: METHADONE HYDROCHLORIDE
     Dosage: 20 MG (40 MG DAILY DOSE)
     Route: 048
     Dates: start: 20150420, end: 20150421
  3. AMITIZA [Concomitant]
     Active Substance: LUBIPROSTONE
     Dosage: 48 MCG
     Route: 048
     Dates: start: 20140501
  4. PRIMPERAN [Concomitant]
     Active Substance: METOCLOPRAMIDE HYDROCHLORIDE
     Dosage: 15 MG
     Route: 048
     Dates: start: 20140619, end: 20140625
  5. METHADONE [Suspect]
     Active Substance: METHADONE HYDROCHLORIDE
     Dosage: 20 MG (40 MG DAILY DOSE)
     Route: 048
     Dates: start: 20141128, end: 20141225
  6. METHADONE [Suspect]
     Active Substance: METHADONE HYDROCHLORIDE
     Dosage: 30 MG (90 MG DAILY DOSE)
     Route: 048
     Dates: start: 20150123, end: 20150408
  7. METHADONE [Suspect]
     Active Substance: METHADONE HYDROCHLORIDE
     Dosage: 20 MG (20 MG DAILY DOSE)
     Route: 048
     Dates: start: 20150422, end: 20150424
  8. OXINORM [Concomitant]
     Active Substance: OXYCODONE HYDROCHLORIDE
     Indication: ANALGESIC THERAPY
     Dosage: 20 MG, PRN
     Route: 048
     Dates: start: 20140311
  9. OXYCONTIN [Concomitant]
     Active Substance: OXYCODONE HYDROCHLORIDE
     Indication: ANALGESIC THERAPY
     Dosage: 180 MG
     Route: 048
     Dates: start: 20140213, end: 20140311
  10. GRANISETRON [Concomitant]
     Active Substance: GRANISETRON
     Dosage: 1 MG
     Route: 042
     Dates: start: 20140327, end: 20140327
  11. ALIMTA [Concomitant]
     Active Substance: PEMETREXED DISODIUM
     Dosage: 850 MG
     Route: 051
     Dates: start: 20140327, end: 20140327
  12. ALOXI [Concomitant]
     Active Substance: PALONOSETRON HYDROCHLORIDE
     Dosage: 0.75 MG
     Route: 051
     Dates: start: 20140619, end: 20140619
  13. METHADONE [Suspect]
     Active Substance: METHADONE HYDROCHLORIDE
     Dosage: 10 MG (20 MG DAILY DOSE)
     Route: 048
     Dates: start: 20140620, end: 20140918
  14. METHADONE [Suspect]
     Active Substance: METHADONE HYDROCHLORIDE
     Dosage: 25 MG (75 MG DAILY DOSE)
     Route: 048
     Dates: start: 20150116, end: 20150122
  15. METHADONE [Suspect]
     Active Substance: METHADONE HYDROCHLORIDE
     Dosage: 25 MG (75 MG DAILY DOSE)
     Route: 048
     Dates: start: 20150409, end: 20150412
  16. LYRICA [Concomitant]
     Active Substance: PREGABALIN
     Dosage: 225 MG
     Route: 048
     Dates: start: 20140522
  17. PANVITAN [Concomitant]
     Dosage: 1000 MG
     Route: 048
     Dates: end: 20140625
  18. OXYCONTIN [Concomitant]
     Active Substance: OXYCODONE HYDROCHLORIDE
     Dosage: 60 MG
     Route: 048
     Dates: start: 20140319, end: 20140322
  19. METHADONE [Suspect]
     Active Substance: METHADONE HYDROCHLORIDE
     Dosage: 10 MG (20 MG DAILY DOSE)
     Route: 048
     Dates: start: 20140319, end: 20140501
  20. DECADRON [Concomitant]
     Active Substance: DEXAMETHASONE
     Dosage: 7.5 MG
     Route: 048
     Dates: start: 20140619, end: 20140625
  21. NEXIUM [Concomitant]
     Active Substance: ESOMEPRAZOLE MAGNESIUM
     Dosage: 10 MG
     Route: 048
     Dates: start: 20140619, end: 20140625
  22. RIVOTRIL [Concomitant]
     Active Substance: CLONAZEPAM
     Indication: ANALGESIC THERAPY
     Dosage: 0.5 MG
     Route: 048
     Dates: start: 20140626, end: 20140628
  23. CARBOPLATIN. [Concomitant]
     Active Substance: CARBOPLATIN
     Dosage: 840 MG
     Route: 042
     Dates: start: 20140327, end: 20140327
  24. METHADONE [Suspect]
     Active Substance: METHADONE HYDROCHLORIDE
     Dosage: 15 MG (30 MG DAILY DOSE)
     Route: 048
     Dates: start: 20140502, end: 20140619
  25. METHADONE [Suspect]
     Active Substance: METHADONE HYDROCHLORIDE
     Dosage: 25 MG (50 MG DAILY DOSE)
     Route: 048
     Dates: start: 20141226, end: 20150115
  26. CELECOX [Concomitant]
     Active Substance: CELECOXIB
     Indication: ANALGESIC THERAPY
     Dosage: 400 MG
     Route: 048
  27. LYRICA [Concomitant]
     Active Substance: PREGABALIN
     Dosage: 150 MG
     Route: 048
     Dates: start: 20140312, end: 20140521
  28. CARBOPLATIN. [Concomitant]
     Active Substance: CARBOPLATIN
     Dosage: 700 MG
     Route: 042
     Dates: start: 20140619, end: 20140619
  29. METHADONE [Suspect]
     Active Substance: METHADONE HYDROCHLORIDE
     Indication: CANCER PAIN
     Dosage: 5 MG (10 MG DAILY DOSE)
     Route: 048
     Dates: start: 20140312, end: 20140318
  30. METHADONE [Suspect]
     Active Substance: METHADONE HYDROCHLORIDE
     Dosage: 20 MG (60 MG DAILY DOSE)
     Route: 048
     Dates: start: 20150413, end: 20150419
  31. LYRICA [Concomitant]
     Active Substance: PREGABALIN
     Indication: ANALGESIC THERAPY
     Dosage: 300 MG
     Route: 048
     Dates: end: 20140311
  32. ZYPREXA [Concomitant]
     Active Substance: OLANZAPINE
     Dosage: 2.5 MG
     Route: 048
     Dates: end: 20140730
  33. DECADRON [Concomitant]
     Active Substance: DEXAMETHASONE
     Dosage: 13.2 MG
     Route: 051
     Dates: start: 20140327, end: 20140327
  34. DECADRON [Concomitant]
     Active Substance: DEXAMETHASONE
     Dosage: 6.6 MG
     Route: 051
     Dates: start: 20140619, end: 20140619
  35. CYMBALTA [Concomitant]
     Active Substance: DULOXETINE HYDROCHLORIDE
     Dosage: 20 MG
     Route: 048
  36. MAGMITT [Concomitant]
     Active Substance: MAGNESIUM OXIDE
     Dosage: 2970 MG
     Route: 048
  37. OXYCONTIN [Concomitant]
     Active Substance: OXYCODONE HYDROCHLORIDE
     Dosage: 120 MG
     Route: 048
     Dates: start: 20140312, end: 20140318
  38. ALIMTA [Concomitant]
     Active Substance: PEMETREXED DISODIUM
     Dosage: 680 MG
     Route: 051
     Dates: start: 20140619, end: 20140619
  39. AVASTIN [Concomitant]
     Active Substance: BEVACIZUMAB
     Dosage: 900 MG
     Route: 042
     Dates: start: 20140327, end: 20140327
  40. AVASTIN [Concomitant]
     Active Substance: BEVACIZUMAB
     Dosage: 900 MG
     Route: 042
     Dates: start: 20140619, end: 20140619

REACTIONS (1)
  - Lung neoplasm malignant [Fatal]

NARRATIVE: CASE EVENT DATE: 20150501
